FAERS Safety Report 7152163-5 (Version None)
Quarter: 2010Q4

REPORT INFORMATION
  Report Type: 
  Country: None (occurrence: None)
  Receive Date: 20101213
  Receipt Date: 20101203
  Transmission Date: 20110411
  Serious: Yes (Other)
  Sender: FDA-Public Use
  Company Number: US-BIOGENIDEC-2010BI040973

PATIENT
  Age: 48 Year
  Sex: Female

DRUGS (2)
  1. AVONEX [Suspect]
     Indication: MULTIPLE SCLEROSIS
     Route: 030
     Dates: start: 19980630
  2. AVONEX [Suspect]
     Route: 030

REACTIONS (4)
  - GAIT DISTURBANCE [None]
  - GRAND MAL CONVULSION [None]
  - MEMORY IMPAIRMENT [None]
  - POSTICTAL HEADACHE [None]
